FAERS Safety Report 5233275-X (Version None)
Quarter: 2007Q1

REPORT INFORMATION
  Report Type: 
  Country: None (occurrence: None)
  Receive Date: 20070207
  Receipt Date: 20070130
  Transmission Date: 20070707
  Serious: Yes (Death)
  Sender: FDA-Public Use
  Company Number: US-ALLERGAN-0701017US

PATIENT
  Age: 85 Year
  Sex: Female

DRUGS (2)
  1. ALPHAGAN P [Suspect]
     Indication: GLAUCOMA
     Dosage: UNK, BID
     Route: 047
     Dates: start: 20061006, end: 20070122
  2. LUMIGAN [Suspect]
     Indication: GLAUCOMA
     Dates: start: 20061006, end: 20070122

REACTIONS (1)
  - DEATH [None]
